FAERS Safety Report 10101988 (Version 1)
Quarter: 2014Q2

REPORT INFORMATION
  Report Type: Spontaneous
  Country: DK (occurrence: FR)
  Receive Date: 20140424
  Receipt Date: 20140424
  Transmission Date: 20141212
  Serious: Yes (Life-Threatening, Hospitalization)
  Sender: FDA-Public Use
  Company Number: FR-FRI-1000066767

PATIENT
  Age: 63 Year
  Sex: Male

DRUGS (7)
  1. ESCITALOPRAM [Suspect]
     Dosage: 1 DF
     Route: 048
  2. COUMADINE [Suspect]
     Dosage: 1.5 DF
     Route: 048
     Dates: end: 20131106
  3. LASILIX [Concomitant]
     Route: 048
  4. PERINDOPRIL [Concomitant]
  5. BISOPROLOL FUMARATE [Concomitant]
  6. FORADIL [Concomitant]
  7. TARDYFERON [Concomitant]

REACTIONS (3)
  - Gastrointestinal haemorrhage [Recovered/Resolved]
  - Melaena [Recovered/Resolved]
  - Anaemia [Recovered/Resolved]
